FAERS Safety Report 7763788-8 (Version None)
Quarter: 2011Q3

REPORT INFORMATION
  Report Type: 
  Country: None (occurrence: None)
  Receive Date: 20110919
  Receipt Date: 20110905
  Transmission Date: 20111222
  Serious: Yes (Other)
  Sender: FDA-Public Use
  Company Number: 7080617

PATIENT
  Age: 50 Year
  Sex: Female

DRUGS (7)
  1. ISOMERIDE (DEXFENFLURAMINE HYDROCHLLORIDE) (DEXFENFLURAMINE) [Suspect]
     Indication: PRODUCT USED FOR UNKNOWN INDICATION
  2. EBASTINE [Suspect]
     Indication: PRODUCT USED FOR UNKNOWN INDICATION
  3. LEVOTHYROXINE SODIUM [Suspect]
     Indication: PRODUCT USED FOR UNKNOWN INDICATION
     Dosage: 150 MCG, ORAL
     Route: 048
     Dates: start: 20080701
  4. PROZAC [Suspect]
     Indication: PRODUCT USED FOR UNKNOWN INDICATION
     Dosage: ORAL
     Route: 048
     Dates: start: 20060201
  5. FLUTICASONE PROPIONATE/SALMETEROL [Suspect]
     Indication: ASTHMA
     Dosage: RESPIRATORY (INHALATION)
     Route: 055
     Dates: start: 19980101
  6. MEDIATOR (BENFLUOREX HYDROCHLORIDE) (BENFLUOREX) [Suspect]
     Indication: OVERWEIGHT
     Dosage: 2 DF (1 DF, 2 IN 1 D), ORAL
     Route: 048
     Dates: start: 20060103, end: 20091210
  7. RABEPRAZOLE SODIUM [Suspect]
     Indication: PRODUCT USED FOR UNKNOWN INDICATION

REACTIONS (4)
  - IATROGENIC INJURY [None]
  - DYSPNOEA EXERTIONAL [None]
  - MITRAL VALVE INCOMPETENCE [None]
  - PULMONARY HYPERTENSION [None]
